FAERS Safety Report 19910664 (Version 1)
Quarter: 2021Q4

REPORT INFORMATION
  Report Type: Spontaneous
  Country: US (occurrence: US)
  Receive Date: 20211004
  Receipt Date: 20211004
  Transmission Date: 20220303
  Serious: Yes (Other)
  Sender: FDA-Public Use
  Company Number: US-JNJFOC-20210946533

PATIENT
  Age: 66 Year
  Sex: Male

DRUGS (1)
  1. NEUTROGENA BEACH DEFENSE WATER PLUS SUN PROTECTION SUNSCREEN BROAD SPE [Suspect]
     Active Substance: AVOBENZONE\HOMOSALATE\OCTISALATE\OCTOCRYLENE
     Indication: Prophylaxis against solar radiation
     Dosage: SPRAYED ALL OVER BODY A LOT FOR THE SUN 3 TIME AND ON WED MAYBE ONCE
     Route: 061
     Dates: start: 20210824

REACTIONS (3)
  - Pneumonia [Recovering/Resolving]
  - Urinary tract infection [Recovering/Resolving]
  - Asthenia [Not Recovered/Not Resolved]

NARRATIVE: CASE EVENT DATE: 20210825
